FAERS Safety Report 18853450 (Version 1)
Quarter: 2021Q1

REPORT INFORMATION
  Report Type: Spontaneous
  Country: TR (occurrence: TR)
  Receive Date: 20210205
  Receipt Date: 20210205
  Transmission Date: 20210420
  Serious: Yes (Hospitalization, Congenital Anomaly, Other)
  Sender: FDA-Public Use
  Company Number: TR-BION-009421

PATIENT
  Age: 5 Day
  Sex: Male
  Weight: 3.25 kg

DRUGS (1)
  1. VALPROIC ACID. [Suspect]
     Active Substance: VALPROIC ACID
     Indication: PRODUCT USED FOR UNKNOWN INDICATION
     Dosage: MOTHER USED FOR EPILEPSY
     Route: 064

REACTIONS (1)
  - Foetal anticonvulsant syndrome [Recovering/Resolving]
